FAERS Safety Report 14778082 (Version 2)
Quarter: 2018Q2

REPORT INFORMATION
  Report Type: Report from Study
  Country: None (occurrence: FR)
  Receive Date: 20180419
  Receipt Date: 20180619
  Transmission Date: 20180711
  Serious: Yes (Other)
  Sender: FDA-Public Use
  Company Number: FR-ABBVIE-18K-056-2325719-00

PATIENT
  Age: 63 Year
  Sex: Male

DRUGS (7)
  1. PENTASA [Concomitant]
     Active Substance: MESALAMINE
     Indication: PRODUCT USED FOR UNKNOWN INDICATION
     Dosage: 1-0-1
  2. HUMIRA [Suspect]
     Active Substance: ADALIMUMAB
     Indication: ENTEROCOLITIS HAEMORRHAGIC
     Dosage: WEEK 0
     Route: 058
     Dates: start: 20180410, end: 20180410
  3. HUMIRA [Suspect]
     Active Substance: ADALIMUMAB
     Dosage: WEEK 4
     Route: 058
     Dates: start: 201805, end: 2018
  4. LUCENTIS [Concomitant]
     Active Substance: RANIBIZUMAB
     Dates: start: 201711
  5. IMUREL [Concomitant]
     Active Substance: AZATHIOPRINE SODIUM
     Indication: PRODUCT USED FOR UNKNOWN INDICATION
     Dosage: 1-1-1
  6. HUMIRA [Suspect]
     Active Substance: ADALIMUMAB
     Dosage: WEEK 2
     Route: 058
     Dates: start: 201804, end: 201804
  7. LUCENTIS [Concomitant]
     Active Substance: RANIBIZUMAB
     Indication: MACULAR FIBROSIS
     Route: 031
     Dates: end: 201710

REACTIONS (4)
  - Macular fibrosis [Not Recovered/Not Resolved]
  - Platelet count decreased [Unknown]
  - Abdominal pain [Not Recovered/Not Resolved]
  - Myalgia [Not Recovered/Not Resolved]

NARRATIVE: CASE EVENT DATE: 2018
